FAERS Safety Report 12551490 (Version 2)
Quarter: 2016Q3

REPORT INFORMATION
  Report Type: Spontaneous
  Country: JP (occurrence: JP)
  Receive Date: 20160713
  Receipt Date: 20160830
  Transmission Date: 20161109
  Serious: Yes (Other)
  Sender: FDA-Public Use
  Company Number: JP-VIFOR (INTERNATIONAL) INC.-VIT-2016-03308

PATIENT
  Age: 65 Year
  Sex: Female
  Weight: 38 kg

DRUGS (37)
  1. LENDORMIN D [Concomitant]
     Active Substance: BROTIZOLAM
     Route: 048
  2. NEXIUM [Concomitant]
     Active Substance: ESOMEPRAZOLE MAGNESIUM
     Route: 048
  3. PLETAAL [Concomitant]
     Active Substance: CILOSTAZOL
     Route: 048
  4. SIGMART [Concomitant]
     Active Substance: NICORANDIL
     Route: 048
  5. L CARTIN [Concomitant]
     Active Substance: LEVOCARNITINE HYDROCHLORIDE
  6. ATELEC [Concomitant]
     Active Substance: CILNIDIPINE
     Route: 048
  7. LIVACT [Concomitant]
     Active Substance: AMINO ACIDS
     Route: 048
  8. MIRCERA [Suspect]
     Active Substance: METHOXY POLYETHYLENE GLYCOL-EPOETIN BETA
     Route: 030
     Dates: start: 20160309
  9. MIRCERA [Suspect]
     Active Substance: METHOXY POLYETHYLENE GLYCOL-EPOETIN BETA
     Route: 030
  10. MAINTATE [Concomitant]
     Active Substance: BISOPROLOL FUMARATE
     Route: 048
  11. SELBEX [Concomitant]
     Active Substance: TEPRENONE
     Route: 048
  12. LENDORMIN D [Concomitant]
     Active Substance: BROTIZOLAM
     Dosage: FRACTIONATION DOSE UNCERTAIN FREQUENCY AND DOSE INTERVAL UNCERTAINTY
     Route: 048
  13. PROMAC [Concomitant]
     Active Substance: NITROFURANTOIN
     Route: 048
  14. MIRCERA [Suspect]
     Active Substance: METHOXY POLYETHYLENE GLYCOL-EPOETIN BETA
     Route: 030
  15. CRAVIT [Concomitant]
     Active Substance: LEVOFLOXACIN
     Indication: PNEUMONIA
     Route: 048
  16. TRANSAMIN [Concomitant]
     Active Substance: TRANEXAMIC ACID
     Route: 048
  17. CALCIUM CARBONATE. [Concomitant]
     Active Substance: CALCIUM CARBONATE
     Route: 048
  18. ADALAT CC [Concomitant]
     Active Substance: NIFEDIPINE
     Route: 048
  19. ALOSENN [Concomitant]
     Active Substance: SENNA LEAF
     Route: 048
  20. VENCOLL [Concomitant]
  21. ITOROL [Concomitant]
     Active Substance: ISOSORBIDE MONONITRATE
     Route: 048
  22. TERAZOSIN [Concomitant]
     Active Substance: TERAZOSIN\TERAZOSIN HYDROCHLORIDE
     Route: 048
  23. CALBLOCK [Concomitant]
     Active Substance: AZELNIDIPINE
     Route: 048
  24. THYRADIN-S [Concomitant]
     Active Substance: LEVOTHYROXINE
     Indication: HYPOPARATHYROIDISM
     Route: 048
     Dates: start: 199604
  25. L CARTIN FF [Concomitant]
     Active Substance: LEVOCARNITINE
     Route: 042
     Dates: start: 201205, end: 201301
  26. L CARTIN FF [Concomitant]
     Active Substance: LEVOCARNITINE
     Route: 042
     Dates: start: 201309
  27. THIODERON [Concomitant]
     Route: 048
  28. HYPOCA [Concomitant]
     Active Substance: BARNIDIPINE HYDROCHLORIDE
     Route: 048
  29. REMITCH [Concomitant]
     Active Substance: NALFURAFINE HYDROCHLORIDE
     Dosage: FRACTIONATION DOSE UNCERTAIN FREQUENCY AND DOSE INTERVAL UNCERTAINTY
     Route: 048
  30. MIRCERA [Suspect]
     Active Substance: METHOXY POLYETHYLENE GLYCOL-EPOETIN BETA
     Indication: NEPHROGENIC ANAEMIA
     Route: 030
     Dates: start: 20160318, end: 20160506
  31. WARFARIN [Concomitant]
     Active Substance: WARFARIN
     Route: 048
  32. PREDONINE [Concomitant]
     Active Substance: PREDNISOLONE\PREDNISOLONE ACETATE\PREDNISOLONE SODIUM SUCCINATE
     Route: 048
  33. PREDONINE [Concomitant]
     Active Substance: PREDNISOLONE\PREDNISOLONE ACETATE\PREDNISOLONE SODIUM SUCCINATE
  34. L CARTIN FF [Concomitant]
     Active Substance: LEVOCARNITINE
     Route: 042
     Dates: start: 201311, end: 201311
  35. L CARTIN FF [Concomitant]
     Active Substance: LEVOCARNITINE
     Route: 042
     Dates: start: 201307, end: 201309
  36. PURSENNID [Concomitant]
     Active Substance: SENNOSIDES A AND B
     Dosage: FRACTIONATION DOSE UNCERTAIN FREQUENCY AND DOSE INTERVAL UNCERTAINTY
  37. L CARTIN FF [Concomitant]
     Active Substance: LEVOCARNITINE
     Route: 042
     Dates: start: 201309, end: 201309

REACTIONS (7)
  - Peripheral artery occlusion [Unknown]
  - Intentional product use issue [Unknown]
  - Anaemia [Unknown]
  - Swelling [Unknown]
  - Haemoglobin decreased [Unknown]
  - Dizziness [Unknown]
  - Haematocrit decreased [Unknown]

NARRATIVE: CASE EVENT DATE: 2015
